FAERS Safety Report 4713125-8 (Version None)
Quarter: 2005Q3

REPORT INFORMATION
  Report Type: 
  Country: None (occurrence: None)
  Receive Date: 20050713
  Receipt Date: 20050706
  Transmission Date: 20060218
  Serious: Yes (Life-Threatening)
  Sender: FDA-Public Use
  Company Number: 2005AP03775

PATIENT
  Age: 47 Year
  Sex: Female

DRUGS (7)
  1. MARCAINE [Suspect]
     Indication: EPIDURAL ANAESTHESIA
     Route: 008
  2. XYLOCAINE [Suspect]
     Indication: EPIDURAL ANAESTHESIA
     Route: 008
  3. DIPRIVAN [Suspect]
     Indication: ANAESTHESIA
     Route: 042
  4. ATROPINE SULFATE [Concomitant]
     Indication: ANAESTHESIA
  5. MORPHINE HCL ELIXIR [Concomitant]
     Indication: ANAESTHESIA
  6. NEOSTIGMINE METHYLSULFATE [Concomitant]
     Indication: ANAESTHESIA
  7. VECURONIUM BROMIDE [Concomitant]
     Indication: ANAESTHESIA

REACTIONS (4)
  - CHROMATURIA [None]
  - HYPERTHERMIA MALIGNANT [None]
  - HYPOXIA [None]
  - MYOGLOBIN URINE PRESENT [None]
